FAERS Safety Report 8958145 (Version 1)
Quarter: 2012Q4

REPORT INFORMATION
  Report Type: 
  Country: US (occurrence: US)
  Receive Date: 20121211
  Receipt Date: 20121211
  Transmission Date: 20130627
  Serious: Yes (Other)
  Sender: FDA-Public Use
  Company Number: US-AMGEN-USASP2012077566

PATIENT
  Age: 51 Year
  Sex: Male

DRUGS (2)
  1. ENBREL [Suspect]
     Indication: RHEUMATOID ARTHRITIS
     Dosage: 50 mg, qwk
     Dates: start: 20120601, end: 201211
  2. METHOTREXATE [Concomitant]
     Dosage: 7 tablets, qwk

REACTIONS (11)
  - Dysphagia [Not Recovered/Not Resolved]
  - Cough [Recovered/Resolved]
  - Aphagia [Recovered/Resolved]
  - Weight decreased [Not Recovered/Not Resolved]
  - Throat tightness [Not Recovered/Not Resolved]
  - Arthralgia [Not Recovered/Not Resolved]
  - Hand deformity [Not Recovered/Not Resolved]
  - Hiccups [Not Recovered/Not Resolved]
  - Asthenia [Not Recovered/Not Resolved]
  - Nervousness [Not Recovered/Not Resolved]
  - Discomfort [Not Recovered/Not Resolved]
